FAERS Safety Report 8376219-4 (Version None)
Quarter: 2012Q2

REPORT INFORMATION
  Report Type: 
  Country: None (occurrence: None)
  Receive Date: 20120522
  Receipt Date: 20120508
  Transmission Date: 20120825
  Serious: Yes (Other)
  Sender: FDA-Public Use
  Company Number: US-RB-039715-12

PATIENT
  Age: 96 Year
  Sex: Male

DRUGS (3)
  1. MUCINEX D [Suspect]
     Indication: PRODUCT USED FOR UNKNOWN INDICATION
     Route: 048
     Dates: start: 20120506
  2. DONEPEZIL HCL [Concomitant]
     Indication: PRODUCT USED FOR UNKNOWN INDICATION
  3. TRAVATAN Z [Concomitant]
     Indication: GLAUCOMA

REACTIONS (3)
  - LOSS OF CONSCIOUSNESS [None]
  - CONFUSIONAL STATE [None]
  - ASTHENIA [None]
